FAERS Safety Report 6633901-4 (Version None)
Quarter: 2010Q1

REPORT INFORMATION
  Report Type: 
  Country: None (occurrence: None)
  Receive Date: 20100315
  Receipt Date: 20100306
  Transmission Date: 20100710
  Serious: Yes (Hospitalization)
  Sender: FDA-Public Use
  Company Number: TR-KINGPHARMUSA00001-K201000290

PATIENT
  Age: 4 Year
  Sex: Male

DRUGS (1)
  1. BICILLIN L-A [Suspect]
     Dosage: UNK

REACTIONS (17)
  - ARTERIAL OCCLUSIVE DISEASE [None]
  - CYANOSIS [None]
  - DEEP VEIN THROMBOSIS [None]
  - ECCHYMOSIS [None]
  - EMBOLIA CUTIS MEDICAMENTOSA [None]
  - HYPOKINESIA [None]
  - INJECTION SITE NECROSIS [None]
  - MUSCLE CONTRACTURE [None]
  - OEDEMA PERIPHERAL [None]
  - PAIN [None]
  - PAIN IN EXTREMITY [None]
  - PERIPHERAL COLDNESS [None]
  - PULSE ABSENT [None]
  - SEGMENTED HYALINISING VASCULITIS [None]
  - SKIN DISCOLOURATION [None]
  - SKIN NECROSIS [None]
  - VENOUS THROMBOSIS [None]
